FAERS Safety Report 23566498 (Version 1)
Quarter: 2024Q1

REPORT INFORMATION
  Report Type: Spontaneous
  Country: US (occurrence: US)
  Receive Date: 20240226
  Receipt Date: 20240226
  Transmission Date: 20240410
  Serious: No
  Sender: FDA-Public Use
  Company Number: US-AMNEAL PHARMACEUTICALS-2023-AMRX-00413

PATIENT
  Sex: Female

DRUGS (1)
  1. RYTARY [Suspect]
     Active Substance: CARBIDOPA\LEVODOPA
     Indication: Product used for unknown indication
     Dosage: 3 CAPSULES(23.75-95MG), 3 /DAY
     Route: 048

REACTIONS (4)
  - Abdominal pain upper [Unknown]
  - Confusional state [Unknown]
  - Pruritus [Unknown]
  - Dizziness [Unknown]
